FAERS Safety Report 10538859 (Version 1)
Quarter: 2014Q4

REPORT INFORMATION
  Report Type: Spontaneous
  Country: BE (occurrence: BE)
  Receive Date: 20141023
  Receipt Date: 20141023
  Transmission Date: 20150529
  Serious: Yes (Other)
  Sender: FDA-Public Use
  Company Number: BE-TEVA-516529ISR

PATIENT
  Age: 58 Year
  Sex: Male

DRUGS (2)
  1. ALENDRONIC ACID [Suspect]
     Active Substance: ALENDRONIC ACID
     Indication: OSTEOPOROSIS
     Dosage: 70MG PER WEEK
     Route: 048
  2. ACLASTA [Suspect]
     Active Substance: ZOLEDRONIC ACID
     Indication: OSTEOPOROSIS
     Dosage: 3 ADMINISTRATIONS
     Route: 041
     Dates: start: 200902, end: 201102

REACTIONS (2)
  - Actinomycosis [Recovering/Resolving]
  - Osteonecrosis of jaw [Recovered/Resolved]
